FAERS Safety Report 9220106 (Version 1)
Quarter: 2013Q2

REPORT INFORMATION
  Report Type: Spontaneous
  Country: US (occurrence: None)
  Receive Date: 20130408
  Receipt Date: 20130408
  Transmission Date: 20140414
  Serious: Yes (Disabling)
  Sender: FDA-Public Use
  Company Number: None

PATIENT
  Age: 59 Year
  Sex: Female
  Weight: 65.77 kg

DRUGS (1)
  1. PICATO [Suspect]
     Indication: SKIN CANCER
     Dosage: ONE TUBE AT NIGHT TOP
     Route: 061
     Dates: start: 20130128, end: 20130128

REACTIONS (8)
  - Application site vesicles [None]
  - Nausea [None]
  - Application site burn [None]
  - Chemical injury [None]
  - Palpitations [None]
  - Pain [None]
  - Impaired driving ability [None]
  - Rash [None]
